FAERS Safety Report 20607333 (Version 2)
Quarter: 2022Q2

REPORT INFORMATION
  Report Type: Spontaneous
  Country: US (occurrence: US)
  Receive Date: 20220317
  Receipt Date: 20220407
  Transmission Date: 20220721
  Serious: Yes (Hospitalization)
  Sender: FDA-Public Use
  Company Number: US-TEVA-2022-US-2016833

PATIENT
  Age: 71 Year
  Sex: Male

DRUGS (2)
  1. EPINEPHRINE [Suspect]
     Active Substance: EPINEPHRINE
     Indication: Local anaesthesia
     Dosage: 15CC OF 1% LIDOCAINE WITH EPINEPHRINE (1:100000); LOCAL ANAESTHESIA 10CC WAS INJECTED IN THE PALM...
     Route: 065
  2. LIDOCAINE [Concomitant]
     Active Substance: LIDOCAINE
     Indication: Local anaesthesia
     Dosage: 15CC OF 1% LIDOCAINE WITH EPINEPHRINE (1:100000); LOCAL ANAESTHESIA 10CC WAS INJECTED IN THE PALM...
     Route: 065

REACTIONS (1)
  - Vasospasm [Recovered/Resolved with Sequelae]
